FAERS Safety Report 19607360 (Version 1)
Quarter: 2021Q3

REPORT INFORMATION
  Report Type: Spontaneous
  Country: CA (occurrence: CA)
  Receive Date: 20210726
  Receipt Date: 20210726
  Transmission Date: 20211014
  Serious: Yes (Other)
  Sender: FDA-Public Use
  Company Number: CA-ROCHE-2874345

PATIENT
  Age: 53 Year
  Sex: Female

DRUGS (12)
  1. RITUXIMAB. [Suspect]
     Active Substance: RITUXIMAB
     Indication: RHEUMATOID ARTHRITIS
  2. DIPHENHYDRAMINE HYDROCHLORIDE. [Concomitant]
     Active Substance: DIPHENHYDRAMINE HYDROCHLORIDE
     Indication: PREMEDICATION
     Route: 048
  3. RITUXIMAB. [Suspect]
     Active Substance: RITUXIMAB
     Indication: SYSTEMIC LUPUS ERYTHEMATOSUS
     Route: 065
  4. VENLAFAXINE HYDROCHLORIDE. [Concomitant]
     Active Substance: VENLAFAXINE HYDROCHLORIDE
  5. MELOXICAM. [Concomitant]
     Active Substance: MELOXICAM
  6. RITUXIMAB. [Suspect]
     Active Substance: RITUXIMAB
     Indication: SYSTEMIC LUPUS ERYTHEMATOSUS
     Route: 041
  7. RITUXIMAB. [Suspect]
     Active Substance: RITUXIMAB
     Indication: RHEUMATOID ARTHRITIS
  8. METHYLPREDNISOLONE. [Concomitant]
     Active Substance: METHYLPREDNISOLONE
     Indication: PREMEDICATION
     Route: 042
  9. PANTOPRAZOLE [Concomitant]
     Active Substance: PANTOPRAZOLE
  10. METHOTREXATE. [Concomitant]
     Active Substance: METHOTREXATE
     Route: 048
  11. HYDROXYCHLOROQUINE SULFATE. [Concomitant]
     Active Substance: HYDROXYCHLOROQUINE SULFATE
  12. ACETAMINOPHEN. [Concomitant]
     Active Substance: ACETAMINOPHEN
     Indication: PREMEDICATION
     Route: 048

REACTIONS (14)
  - Body temperature increased [Recovered/Resolved]
  - Body temperature decreased [Recovered/Resolved]
  - Oropharyngeal pain [Recovered/Resolved]
  - Off label use [Unknown]
  - Infection [Recovered/Resolved]
  - Pruritus [Recovered/Resolved]
  - Migraine [Recovered/Resolved]
  - Cough [Recovered/Resolved]
  - Painful respiration [Recovered/Resolved]
  - Systemic lupus erythematosus [Recovered/Resolved]
  - Chest discomfort [Recovered/Resolved]
  - Drug ineffective [Unknown]
  - Arthralgia [Recovered/Resolved]
  - Fatigue [Recovered/Resolved]
